FAERS Safety Report 5395256-5 (Version None)
Quarter: 2007Q3

REPORT INFORMATION
  Report Type: 
  Country: None (occurrence: None)
  Receive Date: 20070724
  Receipt Date: 20070531
  Transmission Date: 20080115
  Serious: Yes (Disabling)
  Sender: FDA-Public Use
  Company Number: US-PURDUE-USA_2007_0028374

PATIENT
  Sex: Male

DRUGS (1)
  1. OXYCONTIN [Suspect]
     Indication: SPINAL FRACTURE
     Dates: start: 20000101, end: 20070127

REACTIONS (2)
  - DEPRESSION [None]
  - DISABILITY [None]
